FAERS Safety Report 17355282 (Version 1)
Quarter: 2020Q1

REPORT INFORMATION
  Report Type: Spontaneous
  Country: JP (occurrence: JP)
  Receive Date: 20200131
  Receipt Date: 20200131
  Transmission Date: 20200409
  Serious: Yes (Hospitalization, Other)
  Sender: FDA-Public Use
  Company Number: JP-JNJFOC-20200143063

PATIENT
  Age: 71 Year
  Sex: Female
  Weight: 34 kg

DRUGS (3)
  1. ROMOSOZUMAB [Interacting]
     Active Substance: ROMOSOZUMAB
     Indication: OSTEOPOROSIS
     Route: 058
     Dates: start: 20190904, end: 20190904
  2. ITRIZOLE [Suspect]
     Active Substance: ITRACONAZOLE
     Indication: BRONCHOPULMONARY ASPERGILLOSIS
     Route: 048
     Dates: start: 20190823, end: 20190911
  3. ITRIZOLE [Interacting]
     Active Substance: ITRACONAZOLE
     Indication: BRONCHOPULMONARY ASPERGILLOSIS
     Route: 048

REACTIONS (2)
  - Drug interaction [Unknown]
  - Stevens-Johnson syndrome [Recovered/Resolved]

NARRATIVE: CASE EVENT DATE: 20190905
